FAERS Safety Report 19751749 (Version 4)
Quarter: 2021Q4

REPORT INFORMATION
  Report Type: Report from Study
  Country: None (occurrence: US)
  Receive Date: 20210827
  Receipt Date: 20211011
  Transmission Date: 20220303
  Serious: Yes (Other)
  Sender: FDA-Public Use
  Company Number: US-ABBVIE-21K-163-3722205-00

PATIENT
  Age: 74 Year
  Sex: Male
  Weight: 75.82 kg

DRUGS (21)
  1. DUOPA [Suspect]
     Active Substance: CARBIDOPA\LEVODOPA
     Indication: Product used for unknown indication
     Dosage: 4.63 MG/ML 20 MG/ML
     Route: 050
     Dates: start: 20191010
  2. DUOPA [Suspect]
     Active Substance: CARBIDOPA\LEVODOPA
     Dosage: DOSE INCREASED
     Route: 050
  3. DUOPA [Suspect]
     Active Substance: CARBIDOPA\LEVODOPA
     Dosage: DOSE INCREASED
     Route: 050
  4. RYTARY [Concomitant]
     Active Substance: CARBIDOPA\LEVODOPA
     Indication: Parkinson^s disease
  5. RESTASIS [Concomitant]
     Active Substance: CYCLOSPORINE
     Indication: Dry eye
  6. EXELON [Concomitant]
     Active Substance: RIVASTIGMINE TARTRATE
     Indication: Dementia
  7. FLUDROCORTISONE ACETATE [Concomitant]
     Active Substance: FLUDROCORTISONE ACETATE
     Indication: Hypotension
  8. CARBIDOPA\LEVODOPA [Concomitant]
     Active Substance: CARBIDOPA\LEVODOPA
     Indication: Parkinson^s disease
  9. IBUPROFEN [Concomitant]
     Active Substance: IBUPROFEN
     Indication: Product used for unknown indication
  10. MYRBETRIQ [Concomitant]
     Active Substance: MIRABEGRON
     Indication: Bladder spasm
  11. VITAMIN D3 [Concomitant]
     Active Substance: CHOLECALCIFEROL
     Indication: Supplementation therapy
  12. MELATONIN [Concomitant]
     Active Substance: MELATONIN
     Indication: Sleep disorder
  13. RANITIDINE [Concomitant]
     Active Substance: RANITIDINE
     Indication: Gastrooesophageal reflux disease
  14. MIRALAX [Concomitant]
     Active Substance: POLYETHYLENE GLYCOL 3350
     Indication: Laxative supportive care
  15. SERTRALINE [Concomitant]
     Active Substance: SERTRALINE HYDROCHLORIDE
     Indication: Depression
  16. METAMUCIL [Concomitant]
     Active Substance: PLANTAGO SEED
     Indication: Laxative supportive care
  17. MIDODRINE [Concomitant]
     Active Substance: MIDODRINE
     Indication: Blood pressure measurement
  18. ONDANSETRON [Concomitant]
     Active Substance: ONDANSETRON
     Indication: Nausea
  19. ONDANSETRON [Concomitant]
     Active Substance: ONDANSETRON
     Indication: Vertigo
  20. MODERNA COVID-19 VACCINE [Concomitant]
     Active Substance: CX-024414
     Indication: COVID-19 immunisation
     Dosage: MODERNA
     Route: 030
     Dates: start: 20210212, end: 20210212
  21. MODERNA COVID-19 VACCINE [Concomitant]
     Active Substance: CX-024414
     Dosage: MODERNA
     Route: 030
     Dates: start: 20210312, end: 20210312

REACTIONS (19)
  - Dementia [Not Recovered/Not Resolved]
  - Confusional state [Unknown]
  - On and off phenomenon [Unknown]
  - Bradykinesia [Recovering/Resolving]
  - Hypersomnia [Recovering/Resolving]
  - Weight decreased [Recovering/Resolving]
  - Off label use [Not Recovered/Not Resolved]
  - Device issue [Recovered/Resolved]
  - Device kink [Recovered/Resolved]
  - Living in residential institution [Unknown]
  - Device breakage [Unknown]
  - Gait disturbance [Not Recovered/Not Resolved]
  - Judgement impaired [Not Recovered/Not Resolved]
  - Disorientation [Not Recovered/Not Resolved]
  - Parkinson^s disease [Not Recovered/Not Resolved]
  - Device issue [Recovered/Resolved]
  - Wrong technique in device usage process [Recovered/Resolved]
  - Device issue [Unknown]
  - Drug ineffective [Unknown]

NARRATIVE: CASE EVENT DATE: 20200101
